FAERS Safety Report 25895641 (Version 1)
Quarter: 2025Q4

REPORT INFORMATION
  Report Type: Spontaneous
  Country: US (occurrence: US)
  Receive Date: 20251008
  Receipt Date: 20251008
  Transmission Date: 20260117
  Serious: No
  Sender: ALEXION PHARMACEUTICALS
  Company Number: US-AstraZeneca-CH-00964757AP

PATIENT
  Sex: Female

DRUGS (4)
  1. BREZTRI [Suspect]
     Active Substance: BUDESONIDE\FORMOTEROL\GLYCOPYRROLATE
     Dosage: 160 MICROGRAM
  2. SYMBICORT [Suspect]
     Active Substance: BUDESONIDE\FORMOTEROL FUMARATE DIHYDRATE
     Dosage: 160 MICROGRAM
  3. PROAIR HFA [Concomitant]
     Active Substance: ALBUTEROL SULFATE
     Route: 065
  4. PROVENTIL [Concomitant]
     Active Substance: ALBUTEROL
     Route: 065

REACTIONS (10)
  - Swelling face [Unknown]
  - Device use issue [Unknown]
  - Wrong technique in product usage process [Unknown]
  - No adverse event [Unknown]
  - Device delivery system issue [Unknown]
  - No adverse event [Unknown]
  - Wrong technique in product usage process [Unknown]
  - Incorrect dose administered [Unknown]
  - Ocular discomfort [Unknown]
  - Accidental exposure to product [Unknown]
